FAERS Safety Report 22311456 (Version 2)
Quarter: 2023Q2

REPORT INFORMATION
  Report Type: Spontaneous
  Country: IE (occurrence: IE)
  Receive Date: 20230511
  Receipt Date: 20230518
  Transmission Date: 20230721
  Serious: Yes (Hospitalization)
  Sender: FDA-Public Use
  Company Number: IE-BAUSCH-BL-2023-006998

PATIENT
  Age: 16 Year
  Sex: Female

DRUGS (1)
  1. DEXAMETHASONE [Suspect]
     Active Substance: DEXAMETHASONE
     Indication: Central nervous system dermoid tumour
     Dosage: MULTIPLE COURSES
     Route: 065

REACTIONS (1)
  - Pituitary hyperplasia [Recovering/Resolving]
